FAERS Safety Report 14694006 (Version 6)
Quarter: 2018Q4

REPORT INFORMATION
  Report Type: Spontaneous
  Country: US (occurrence: US)
  Receive Date: 20180329
  Receipt Date: 20181011
  Transmission Date: 20190204
  Serious: No
  Sender: FDA-Public Use
  Company Number: US-PFIZER INC-2018130682

PATIENT
  Age: 55 Year
  Sex: Male
  Weight: 113 kg

DRUGS (7)
  1. LYRICA [Suspect]
     Active Substance: PREGABALIN
     Indication: NERVE INJURY
     Dosage: 25 MG, 2X/DAY
  2. LYRICA [Suspect]
     Active Substance: PREGABALIN
     Indication: BACK PAIN
     Dosage: 150 MG, 2X/DAY
     Route: 048
  3. OXYCODONE [Concomitant]
     Active Substance: OXYCODONE
     Dosage: UNK
  4. PERCOCET [OXYCODONE HYDROCHLORIDE;PARACETAMOL] [Concomitant]
     Indication: PAIN
     Dosage: 1 DF, AS NEEDED [OXYCODONE HYDROCHLORIDE: 7.5 MG/PARACETAMOL: 325 MG]; FOUR TIMES A DAY
     Route: 048
  5. PERCOCET [OXYCODONE HYDROCHLORIDE;PARACETAMOL] [Concomitant]
     Indication: BACK PAIN
  6. METOPROLOL. [Concomitant]
     Active Substance: METOPROLOL
     Indication: HYPERTENSION
     Dosage: 25 MG, 2X/DAY
     Route: 048
  7. WARFARIN [Concomitant]
     Active Substance: WARFARIN
     Indication: ANTICOAGULANT THERAPY
     Dosage: 6 MG, 1X/DAY (ONCE A DAY IN THE EVENING, ONE TIME A DAY)
     Route: 048

REACTIONS (3)
  - Drug ineffective [Unknown]
  - Withdrawal syndrome [Unknown]
  - Spondylitis [Unknown]
